FAERS Safety Report 11130923 (Version 1)
Quarter: 2015Q2

REPORT INFORMATION
  Report Type: Spontaneous
  Country: None (occurrence: None)
  Receive Date: 20150521
  Receipt Date: 20150521
  Transmission Date: 20150821
  Serious: Yes (Life-Threatening, Hospitalization, Other)
  Sender: FDA-Public Use
  Company Number: None

PATIENT
  Age: 47 Year
  Sex: Female

DRUGS (13)
  1. CLARITIN [Concomitant]
     Active Substance: LORATADINE
  2. SPIRONOLACTONE. [Concomitant]
     Active Substance: SPIRONOLACTONE
  3. TOPICAL Q ER [Concomitant]
  4. AMBIEN [Concomitant]
     Active Substance: ZOLPIDEM TARTRATE
  5. IBUPROFEN. [Concomitant]
     Active Substance: IBUPROFEN
  6. XOPENEX [Concomitant]
     Active Substance: LEVALBUTEROL HYDROCHLORIDE
  7. DAPAGLIFLOZIN 10 MG ASTRAZENECA [Suspect]
     Active Substance: DAPAGLIFLOZIN
     Indication: DIABETES MELLITUS
     Route: 048
  8. SINGULAIR [Concomitant]
     Active Substance: MONTELUKAST SODIUM
  9. SYMBICORT [Concomitant]
     Active Substance: BUDESONIDE\FORMOTEROL FUMARATE DIHYDRATE
  10. ASPIRIN. [Concomitant]
     Active Substance: ASPIRIN
  11. ALBUTEROL CFC FREE [Concomitant]
  12. TOPROL XL [Concomitant]
     Active Substance: METOPROLOL SUCCINATE
  13. CATAPRES-TTS [Concomitant]
     Active Substance: CLONIDINE

REACTIONS (3)
  - Liver transplant [None]
  - Chromaturia [None]
  - Drug-induced liver injury [None]

NARRATIVE: CASE EVENT DATE: 20140501
